FAERS Safety Report 17900479 (Version 1)
Quarter: 2020Q2

REPORT INFORMATION
  Report Type: Spontaneous
  Country: US (occurrence: US)
  Receive Date: 20200616
  Receipt Date: 20200616
  Transmission Date: 20200714
  Serious: No
  Sender: FDA-Public Use
  Company Number: US-PFIZER INC-2019060409

PATIENT
  Age: 72 Year
  Sex: Female
  Weight: 78 kg

DRUGS (1)
  1. IBRANCE [Suspect]
     Active Substance: PALBOCICLIB
     Indication: BREAST CANCER METASTATIC
     Dosage: 100 MG, CYCLIC (1 DAILY FOR 14 DAYS TO BE FOLLOWED BY 14 OFF DAYS)
     Route: 048
     Dates: start: 201806

REACTIONS (2)
  - Neoplasm progression [Unknown]
  - Product dose omission [Unknown]
